FAERS Safety Report 18187409 (Version 2)
Quarter: 2020Q4

REPORT INFORMATION
  Report Type: Spontaneous
  Country: US (occurrence: US)
  Receive Date: 20200824
  Receipt Date: 20201008
  Transmission Date: 20210113
  Serious: Yes (Death, Hospitalization)
  Sender: FDA-Public Use
  Company Number: US-VERASTEM-2020-00149

PATIENT

DRUGS (2)
  1. COPIKTRA [Suspect]
     Active Substance: DUVELISIB
     Dosage: 50 MG (25 MG CAPSULE X 2), BID
     Route: 048
     Dates: start: 20200804, end: 20200805
  2. COPIKTRA [Suspect]
     Active Substance: DUVELISIB
     Indication: PERIPHERAL T-CELL LYMPHOMA UNSPECIFIED
     Dosage: 75 MG (25 MG CAPSULE X 3), BID
     Route: 048
     Dates: start: 20200703, end: 2020

REACTIONS (11)
  - Death [Fatal]
  - Nausea [Unknown]
  - Neutrophil count decreased [Unknown]
  - Prescribed overdose [Not Recovered/Not Resolved]
  - Diarrhoea [Recovered/Resolved]
  - Product dose omission issue [Unknown]
  - Product use in unapproved indication [Not Recovered/Not Resolved]
  - Abdominal discomfort [Unknown]
  - Hospitalisation [Recovered/Resolved]
  - Contusion [Unknown]
  - Night sweats [Unknown]

NARRATIVE: CASE EVENT DATE: 202007
